FAERS Safety Report 12124395 (Version 1)
Quarter: 2016Q1

REPORT INFORMATION
  Report Type: Report from Study
  Country: US (occurrence: US)
  Receive Date: 20160229
  Receipt Date: 20160229
  Transmission Date: 20160526
  Serious: Yes (Other)
  Sender: FDA-Public Use
  Company Number: US-JNJFOC-20160215846

PATIENT
  Sex: Male

DRUGS (19)
  1. FLOVENT HFA [Concomitant]
     Active Substance: FLUTICASONE PROPIONATE
     Route: 065
  2. SINGULAIR [Concomitant]
     Active Substance: MONTELUKAST SODIUM
     Route: 065
  3. LIPITOR [Concomitant]
     Active Substance: ATORVASTATIN CALCIUM
     Route: 065
  4. MEDI-MECLIZINE [Concomitant]
     Route: 065
  5. NITROSTAT [Concomitant]
     Active Substance: NITROGLYCERIN
     Route: 060
  6. PROAIR HFA [Concomitant]
     Active Substance: ALBUTEROL SULFATE
     Route: 065
  7. COREG [Concomitant]
     Active Substance: CARVEDILOL
     Route: 065
  8. ASPIRIN. [Suspect]
     Active Substance: ASPIRIN
     Indication: PRODUCT USED FOR UNKNOWN INDICATION
     Route: 065
  9. XARELTO [Suspect]
     Active Substance: RIVAROXABAN
     Indication: PRODUCT USED FOR UNKNOWN INDICATION
     Route: 048
  10. BUMEX [Concomitant]
     Active Substance: BUMETANIDE
     Route: 065
  11. KENALOG [Concomitant]
     Active Substance: TRIAMCINOLONE ACETONIDE
     Route: 065
  12. TYLENOL EXTRA STRENGTH [Suspect]
     Active Substance: ACETAMINOPHEN
     Indication: PRODUCT USED FOR UNKNOWN INDICATION
     Route: 065
  13. NORCO [Suspect]
     Active Substance: ACETAMINOPHEN\HYDROCODONE BITARTRATE
     Indication: PRODUCT USED FOR UNKNOWN INDICATION
     Dosage: 5-325 MG PER TABLET
     Route: 065
  14. XALATAN [Concomitant]
     Active Substance: LATANOPROST
     Route: 047
  15. VITAMINA B12 [Concomitant]
     Route: 065
  16. VITAMIN D2 [Concomitant]
     Active Substance: ERGOCALCIFEROL
     Route: 048
  17. TYLENOL EXTRA STRENGTH [Suspect]
     Active Substance: ACETAMINOPHEN
     Indication: PRODUCT USED FOR UNKNOWN INDICATION
     Dosage: CONTROLLED RELEASE TABLET
     Route: 065
  18. FOLVITE [Concomitant]
     Active Substance: FOLIC ACID
     Route: 065
  19. PROTONIX [Concomitant]
     Active Substance: PANTOPRAZOLE SODIUM
     Route: 065

REACTIONS (30)
  - Carotid artery stenosis [Unknown]
  - Atrial fibrillation [Unknown]
  - Hypoxia [Unknown]
  - Obstructive airways disorder [Unknown]
  - Acute respiratory failure [Unknown]
  - Cardiac failure congestive [Unknown]
  - Pulmonary hypertension [Unknown]
  - Overweight [Unknown]
  - Transient ischaemic attack [Unknown]
  - Diverticulitis intestinal haemorrhagic [Unknown]
  - Hypotension [Unknown]
  - Hypertension [Unknown]
  - Sleep apnoea syndrome [Unknown]
  - Coronary artery disease [Unknown]
  - Cholecystitis acute [Unknown]
  - Pleural effusion [Unknown]
  - Restrictive pulmonary disease [Unknown]
  - Leukocytosis [Unknown]
  - Dyspnoea [Unknown]
  - Cerebral infarction [Unknown]
  - Mitral valve incompetence [Unknown]
  - Gastrointestinal haemorrhage [Unknown]
  - High density lipoprotein decreased [Unknown]
  - Anaemia [Unknown]
  - Aortic valve incompetence [Unknown]
  - Acute kidney injury [Unknown]
  - Continuous positive airway pressure [Unknown]
  - Diverticulum [Unknown]
  - Abdominal pain upper [Unknown]
  - Arthralgia [Unknown]
